FAERS Safety Report 4683946-9 (Version None)
Quarter: 2005Q2

REPORT INFORMATION
  Report Type: 
  Country: None (occurrence: None)
  Receive Date: 20050607
  Receipt Date: 20050531
  Transmission Date: 20051028
  Serious: Yes (Death, Life-Threatening)
  Sender: FDA-Public Use
  Company Number: FR-MERCK-0505FRA00118

PATIENT
  Age: 73 Year
  Sex: Male

DRUGS (6)
  1. PRIMAXIN [Suspect]
     Route: 042
     Dates: start: 20050116, end: 20050216
  2. AMPHOTERICIN B [Suspect]
     Indication: CANDIDIASIS
     Route: 042
     Dates: start: 20050120, end: 20050203
  3. FLUCONAZOLE [Suspect]
     Indication: CANDIDIASIS
     Route: 042
     Dates: start: 20050116, end: 20050120
  4. VANCOMYCIN [Suspect]
     Route: 042
     Dates: start: 20050116, end: 20050216
  5. METHOTREXATE [Concomitant]
     Indication: RHEUMATOID ARTHRITIS
     Route: 048
  6. ETANERCEPT [Concomitant]
     Indication: RHEUMATOID ARTHRITIS
     Route: 065

REACTIONS (4)
  - ANAEMIA [None]
  - SEPSIS [None]
  - SEPTIC SHOCK [None]
  - THROMBOCYTOPENIA [None]
